FAERS Safety Report 5688503-3 (Version None)
Quarter: 2008Q1

REPORT INFORMATION
  Report Type: 
  Country: None (occurrence: None)
  Receive Date: 20080328
  Receipt Date: 20080328
  Transmission Date: 20080703
  Serious: Yes (Other)
  Sender: FDA-Public Use
  Company Number: None

PATIENT
  Age: 29 Year
  Sex: Female
  Weight: 70.3075 kg

DRUGS (2)
  1. ZYRTEC [Suspect]
     Indication: MULTIPLE ALLERGIES
     Dosage: 10MG 24HRS PO
     Route: 048
  2. ZYRTEC [Suspect]

REACTIONS (7)
  - ABNORMAL BEHAVIOUR [None]
  - BREAST SWELLING [None]
  - BREAST TENDERNESS [None]
  - DEPRESSION [None]
  - MOOD SWINGS [None]
  - NIGHTMARE [None]
  - SUICIDAL IDEATION [None]
